FAERS Safety Report 6777494-X (Version None)
Quarter: 2010Q2

REPORT INFORMATION
  Report Type: 
  Country: None (occurrence: None)
  Receive Date: 20100618
  Receipt Date: 20100609
  Transmission Date: 20101027
  Serious: Yes (Death, Other)
  Sender: FDA-Public Use
  Company Number: GB-ELI_LILLY_AND_COMPANY-GB201004003806

PATIENT
  Age: 69 Year
  Sex: Female
  Weight: 100 kg

DRUGS (8)
  1. XIGRIS [Suspect]
     Indication: SEPSIS
     Dosage: 2400 UG, EVERY HOUR
     Route: 042
     Dates: start: 20100401
  2. GENTAMICIN [Concomitant]
     Indication: SEPSIS
     Dosage: 500 MG, UNKNOWN
     Route: 042
     Dates: start: 20100402
  3. HYDROCORTISONE [Concomitant]
     Indication: SEPSIS
     Dosage: 100 MG, UNKNOWN
     Route: 042
     Dates: start: 20100401
  4. NORADRENALINE [Concomitant]
     Dosage: 0.1 UG/KG, UNKNOWN
     Route: 042
     Dates: start: 20100403
  5. PANTOPRAZOLE [Concomitant]
     Dosage: 40 MG, UNKNOWN
     Route: 042
     Dates: start: 20100401
  6. ACETAMINOPHEN [Concomitant]
     Dosage: 1 G, UNKNOWN
     Route: 042
     Dates: start: 20100329
  7. TAZOCIN [Concomitant]
     Dosage: 4.5 MG, UNKNOWN
     Route: 042
     Dates: start: 20100331
  8. TEICOPLANIN [Concomitant]
     Indication: SEPSIS
     Dosage: 400 MG, UNKNOWN
     Route: 042
     Dates: start: 20100331

REACTIONS (4)
  - BRAIN HERNIATION [None]
  - BRAIN OEDEMA [None]
  - CEREBRAL HAEMORRHAGE [None]
  - SUBARACHNOID HAEMORRHAGE [None]
